FAERS Safety Report 21538563 (Version 1)
Quarter: 2022Q4

REPORT INFORMATION
  Report Type: Spontaneous
  Country: CN (occurrence: CN)
  Receive Date: 20221102
  Receipt Date: 20221102
  Transmission Date: 20230113
  Serious: Yes (Other)
  Sender: FDA-Public Use
  Company Number: None

PATIENT
  Age: 36 Year
  Sex: Female
  Weight: 60 kg

DRUGS (2)
  1. CYCLOPHOSPHAMIDE [Suspect]
     Active Substance: CYCLOPHOSPHAMIDE
     Indication: Breast cancer
     Dosage: 0.9 G DILUTED WITH 250 ML OF SALINE SOLUTION, Q21D, DOSAGE FORM- INJECTION
     Route: 041
     Dates: start: 20220804, end: 20220804
  2. SODIUM CHLORIDE [Suspect]
     Active Substance: SODIUM CHLORIDE
     Indication: Medication dilution
     Dosage: (SALINE SOLUTION) 250 ML USED TO DILUTE 0.9 G CYCLOPHOSPHAMIDE, Q21D
     Route: 041
     Dates: start: 20220804, end: 20220804

REACTIONS (2)
  - Nausea [Recovering/Resolving]
  - Vomiting [Recovering/Resolving]

NARRATIVE: CASE EVENT DATE: 20220804
